FAERS Safety Report 8435448-1 (Version None)
Quarter: 2012Q2

REPORT INFORMATION
  Report Type: 
  Country: None (occurrence: None)
  Receive Date: 20120614
  Receipt Date: 20120606
  Transmission Date: 20120825
  Serious: Yes (Hospitalization)
  Sender: FDA-Public Use
  Company Number: US-BAYER-2011-114447

PATIENT
  Age: 39 Year
  Sex: Female
  Weight: 73.469 kg

DRUGS (9)
  1. ANTI-ASTHMATICS [Concomitant]
  2. NSAID'S [Concomitant]
  3. LUNESTA [Concomitant]
     Dosage: UNK
     Route: 048
     Dates: start: 20090506
  4. YAZ [Suspect]
     Indication: PREMENSTRUAL SYNDROME
     Dosage: UNK
     Route: 048
     Dates: start: 20080201, end: 20090401
  5. AMBIEN [Concomitant]
  6. ALBUTEROL [Concomitant]
     Dosage: INHALED
     Route: 045
     Dates: start: 20090507
  7. XANAX [Concomitant]
  8. CELEXA [Concomitant]
  9. ADVIL [Concomitant]
     Dosage: UNK
     Route: 048
     Dates: start: 20090508

REACTIONS (3)
  - DEEP VEIN THROMBOSIS [None]
  - PULMONARY EMBOLISM [None]
  - CHEST PAIN [None]
